FAERS Safety Report 10993101 (Version 1)
Quarter: 2015Q2

REPORT INFORMATION
  Report Type: Spontaneous
  Country: FR (occurrence: FR)
  Receive Date: 20150407
  Receipt Date: 20150407
  Transmission Date: 20150821
  Serious: Yes (Hospitalization)
  Sender: FDA-Public Use
  Company Number: FR-BRISTOL-MYERS SQUIBB COMPANY-BMS-2015-020222

PATIENT
  Age: 57 Year
  Sex: Female

DRUGS (5)
  1. 5 FU [Suspect]
     Active Substance: FLUOROURACIL
     Indication: LARYNGEAL SQUAMOUS CELL CARCINOMA
     Dosage: 2250 MG, UNK: DAY 1 AND 3: 22-DEC-2014:2200 MG
     Route: 065
     Dates: start: 20141201
  2. ERBITUX [Suspect]
     Active Substance: CETUXIMAB
     Indication: LARYNGEAL SQUAMOUS CELL CARCINOMA
     Dosage: 365 MG, QD
     Route: 042
  3. CARBOPLATIN. [Suspect]
     Active Substance: CARBOPLATIN
     Indication: LARYNGEAL SQUAMOUS CELL CARCINOMA
     Dosage: 330 MG, TID: 320 MG:24-DEC-2014
     Route: 065
     Dates: start: 20141203
  4. TAXOTERE [Suspect]
     Active Substance: DOCETAXEL
     Indication: LARYNGEAL SQUAMOUS CELL CARCINOMA
     Dosage: 112 MG, QD
     Route: 042
     Dates: start: 20141202, end: 20141202
  5. NEULASTA [Suspect]
     Active Substance: PEGFILGRASTIM
     Indication: LARYNGEAL SQUAMOUS CELL CARCINOMA
     Dosage: 6 MG, UNK: 25-DEC-2014
     Route: 058
     Dates: start: 20141204

REACTIONS (1)
  - Peripheral sensorimotor neuropathy [Not Recovered/Not Resolved]

NARRATIVE: CASE EVENT DATE: 20141206
